FAERS Safety Report 5952076-8 (Version None)
Quarter: 2008Q4

REPORT INFORMATION
  Report Type: 
  Country: None (occurrence: None)
  Receive Date: 20081113
  Receipt Date: 20080307
  Transmission Date: 20090506
  Serious: No
  Sender: FDA-Public Use
  Company Number: A0714089A

PATIENT
  Age: 79 Year
  Sex: Female

DRUGS (5)
  1. COREG [Suspect]
     Indication: LEFT VENTRICULAR DYSFUNCTION
     Dosage: 3.125MG TWICE PER DAY
     Route: 048
     Dates: start: 20060601
  2. ATENOLOL [Concomitant]
  3. ASPIRIN [Concomitant]
  4. VITAMINS [Concomitant]
  5. HERBAL TEA [Concomitant]

REACTIONS (1)
  - DRUG INEFFECTIVE [None]
